FAERS Safety Report 16771823 (Version 2)
Quarter: 2019Q3

REPORT INFORMATION
  Report Type: Spontaneous
  Country: SE (occurrence: SE)
  Receive Date: 20190904
  Receipt Date: 20190917
  Transmission Date: 20191005
  Serious: Yes (Life-Threatening, Hospitalization, Other)
  Sender: FDA-Public Use
  Company Number: US-MYLANLABS-2019M1045046

PATIENT
  Age: 28 Year
  Sex: Female

DRUGS (12)
  1. ACETYLSALICYLIC ACID [Suspect]
     Active Substance: ASPIRIN
     Indication: PRODUCT USED FOR UNKNOWN INDICATION
     Dosage: 300 MILLIGRAM
  2. BENZYLPENICILLIN                   /00000903/ [Concomitant]
     Active Substance: PENICILLIN G
     Indication: MYOCARDITIS
     Dosage: 3 DOSAGE FORM, QD
  3. EPINEPHRINE. [Concomitant]
     Active Substance: EPINEPHRINE
     Dosage: UNK
  4. GENTAMICIN. [Concomitant]
     Active Substance: GENTAMICIN
     Indication: MYOCARDITIS
     Dosage: UNK
  5. ISOPROTERENOL                      /00006301/ [Concomitant]
     Active Substance: ISOPROTERENOL
     Dosage: UNK
  6. DOXYCYCLINE. [Concomitant]
     Active Substance: DOXYCYCLINE
     Indication: MYOCARDITIS
     Dosage: UNK
  7. FONDAPARINUX [Suspect]
     Active Substance: FONDAPARINUX
     Indication: THROMBOSIS PROPHYLAXIS
     Dosage: 2.5 MILLIGRAM, QD
  8. METHYLPREDNISOLONE. [Concomitant]
     Active Substance: METHYLPREDNISOLONE
  9. TICAGRELOR. [Suspect]
     Active Substance: TICAGRELOR
     Indication: PRODUCT USED FOR UNKNOWN INDICATION
     Dosage: 180 MILLIGRAM
  10. MILRINONE [Concomitant]
     Active Substance: MILRINONE
     Dosage: UNK
  11. DOBUTAMINE [Concomitant]
     Active Substance: DOBUTAMINE HYDROCHLORIDE
     Dosage: UNK
  12. MEROPENEM. [Concomitant]
     Active Substance: MEROPENEM

REACTIONS (15)
  - Spinal cord haemorrhage [Unknown]
  - Cardiac failure [Unknown]
  - Hepatic ischaemia [Unknown]
  - Haemorrhagic diathesis [Unknown]
  - Cardiogenic shock [Unknown]
  - Atrioventricular block [Unknown]
  - Hypoperfusion [Unknown]
  - Upper gastrointestinal haemorrhage [Unknown]
  - Arrhythmia [Unknown]
  - Catheter site haemorrhage [Unknown]
  - Spinal cord injury [Unknown]
  - Spinal cord infarction [Unknown]
  - Cardiac arrest [Unknown]
  - Acute kidney injury [Unknown]
  - Paraplegia [Unknown]
